FAERS Safety Report 5585264-3 (Version None)
Quarter: 2008Q1

REPORT INFORMATION
  Report Type: 
  Country: None (occurrence: None)
  Receive Date: 20080109
  Receipt Date: 20071226
  Transmission Date: 20080703
  Serious: Yes (Other)
  Sender: FDA-Public Use
  Company Number: US-BAYER-200714692NA

PATIENT
  Age: 66 Year
  Sex: Male

DRUGS (13)
  1. BETASERON [Suspect]
     Indication: MULTIPLE SCLEROSIS
     Route: 058
     Dates: start: 20040324, end: 20070115
  2. BETASERON [Suspect]
     Dosage: TOTAL DAILY DOSE: 8 MIU
     Route: 058
     Dates: start: 20071005
  3. GABAPENTIM [Concomitant]
     Indication: BURNING SENSATION
     Dosage: TOTAL DAILY DOSE: 2000 MG
     Dates: start: 20070101
  4. CHOLESTEROL MEDICATION [Concomitant]
  5. BLOOD PRESSURE [Concomitant]
  6. VITAMINS [Concomitant]
  7. VYTORIN [Concomitant]
     Route: 065
  8. METOPROLOL [Concomitant]
  9. BACLOFEN [Concomitant]
  10. LISINOPRIL [Concomitant]
  11. PRENATAL VITAMIN SUPPLEMENT [Concomitant]
  12. CALTRATE [Concomitant]
  13. PERCOCET [Concomitant]

REACTIONS (6)
  - ARTHRALGIA [None]
  - CORONARY ARTERY OCCLUSION [None]
  - FATIGUE [None]
  - GAIT DISTURBANCE [None]
  - MULTIPLE SCLEROSIS [None]
  - PAIN IN EXTREMITY [None]
